FAERS Safety Report 16938636 (Version 1)
Quarter: 2019Q4

REPORT INFORMATION
  Report Type: Spontaneous
  Country: BR (occurrence: BR)
  Receive Date: 20191019
  Receipt Date: 20191019
  Transmission Date: 20200122
  Serious: Yes (Other)
  Sender: FDA-Public Use
  Company Number: NVSC2019BR010184

PATIENT
  Sex: Female

DRUGS (3)
  1. AZOPT [Suspect]
     Active Substance: BRINZOLAMIDE
     Indication: PRODUCT USED FOR UNKNOWN INDICATION
     Dosage: UNK, BID
     Route: 065
  2. DUO TRAVATAN [Suspect]
     Active Substance: TIMOLOL MALEATE\TRAVOPROST
     Indication: GLAUCOMA
     Dosage: 1 GTT, QD
     Route: 065
  3. INSULIN [Concomitant]
     Active Substance: INSULIN NOS
     Indication: DIABETES MELLITUS
     Route: 065

REACTIONS (7)
  - Nasopharyngitis [Unknown]
  - Product dose omission [Unknown]
  - Head injury [Unknown]
  - Hypoacusis [Unknown]
  - Upper limb fracture [Unknown]
  - Fall [Unknown]
  - Malaise [Unknown]
